FAERS Safety Report 9280109 (Version 1)
Quarter: 2013Q2

REPORT INFORMATION
  Report Type: Spontaneous
  Country: CN (occurrence: CN)
  Receive Date: 20130509
  Receipt Date: 20130509
  Transmission Date: 20140414
  Serious: Yes (Death, Other)
  Sender: FDA-Public Use
  Company Number: CN-ABBOTT-13X-035-1086573-00

PATIENT
  Age: 62 Year
  Sex: Male

DRUGS (2)
  1. DEPAKINE CHRONO [Suspect]
     Indication: EPILEPSY
     Route: 048
     Dates: start: 20120520, end: 20120722
  2. LAMOTRIGINE [Concomitant]
     Indication: PRODUCT USED FOR UNKNOWN INDICATION
     Dates: start: 20120621, end: 20120722

REACTIONS (10)
  - Death [Fatal]
  - Epidermolysis bullosa [Fatal]
  - Oedema peripheral [Unknown]
  - Diabetes mellitus [Unknown]
  - Convulsion [Unknown]
  - Hypoalbuminaemia [Unknown]
  - Mouth ulceration [Unknown]
  - Electrolyte imbalance [Unknown]
  - Lethargy [Unknown]
  - Anaemia [Unknown]
